FAERS Safety Report 25245985 (Version 1)
Quarter: 2025Q2

REPORT INFORMATION
  Report Type: Spontaneous
  Country: US (occurrence: None)
  Receive Date: 20250428
  Receipt Date: 20250428
  Transmission Date: 20250716
  Serious: Yes (Disabling)
  Sender: FDA-CTU
  Company Number: None

PATIENT
  Age: 62 Year
  Sex: Female
  Weight: 60.75 kg

DRUGS (7)
  1. RECLAST [Suspect]
     Active Substance: ZOLEDRONIC ACID
     Indication: Osteoporosis
     Dates: start: 20240318, end: 20240318
  2. SYNTHROID [Concomitant]
     Active Substance: LEVOTHYROXINE SODIUM
  3. CYTOMEL [Concomitant]
     Active Substance: LIOTHYRONINE SODIUM
  4. DULOXETINE [Concomitant]
     Active Substance: DULOXETINE
  5. XIIDRA [Concomitant]
     Active Substance: LIFITEGRAST
  6. CALCIUM\VITAMIN D [Concomitant]
     Active Substance: CALCIUM\VITAMIN D
  7. collagen/probiotic powder [Concomitant]

REACTIONS (14)
  - Vomiting [None]
  - Diarrhoea [None]
  - Pyrexia [None]
  - Bone pain [None]
  - Confusional state [None]
  - Visual impairment [None]
  - Dizziness [None]
  - Pain in extremity [None]
  - Pain [None]
  - Fatigue [None]
  - Gait disturbance [None]
  - Bedridden [None]
  - Fibromyalgia [None]
  - Infusion related reaction [None]

NARRATIVE: CASE EVENT DATE: 20240318
